FAERS Safety Report 9695066 (Version 5)
Quarter: 2014Q1

REPORT INFORMATION
  Report Type: Report from Study
  Country: BE (occurrence: BE)
  Receive Date: 20131119
  Receipt Date: 20140221
  Transmission Date: 20141002
  Serious: Yes (Hospitalization)
  Sender: FDA-Public Use
  Company Number: PHHO2013BE014945

PATIENT
  Sex: 0

DRUGS (5)
  1. ACZ885 [Suspect]
     Indication: CRYOPYRIN ASSOCIATED PERIODIC SYNDROME
     Dosage: 6 MG/KG, EOW
     Route: 058
     Dates: start: 20120116, end: 20130812
  2. ACZ885 [Suspect]
     Dosage: 4 MG/KG, QW
     Route: 058
     Dates: start: 20130826, end: 20131112
  3. ACZ885 [Suspect]
     Dosage: 4 MG/KG, QW
     Route: 058
     Dates: start: 20131118
  4. ACETAZOLAMIDE [Concomitant]
     Indication: INTRACRANIAL PRESSURE INCREASED
     Dosage: 50 UG, BID
     Route: 048
     Dates: start: 20130828
  5. ACETAZOLAMIDE [Concomitant]
     Indication: OEDEMA

REACTIONS (1)
  - Bronchitis [Recovered/Resolved]
